FAERS Safety Report 18484983 (Version 1)
Quarter: 2020Q4

REPORT INFORMATION
  Report Type: Spontaneous
  Country: DE (occurrence: DE)
  Receive Date: 20201110
  Receipt Date: 20201110
  Transmission Date: 20210114
  Serious: Yes (Other)
  Sender: FDA-Public Use
  Company Number: NVSC2020DE297785

PATIENT
  Sex: Male

DRUGS (1)
  1. MYFORTIC [Suspect]
     Active Substance: MYCOPHENOLATE SODIUM
     Indication: LIVER TRANSPLANT
     Dosage: 350 MG, BID, SINCE THE 90S
     Route: 065

REACTIONS (2)
  - Incorrect dose administered [Unknown]
  - Colon cancer [Unknown]

NARRATIVE: CASE EVENT DATE: 2020
